FAERS Safety Report 7755664-1 (Version None)
Quarter: 2011Q3

REPORT INFORMATION
  Report Type: 
  Country: None (occurrence: None)
  Receive Date: 20110915
  Receipt Date: 20110915
  Transmission Date: 20111222
  Serious: Yes (Other)
  Sender: FDA-Public Use
  Company Number: None

PATIENT
  Age: 69 Year
  Sex: Female
  Weight: 89.3586 kg

DRUGS (2)
  1. HYDROCORTISONE [Concomitant]
  2. TRADJENTA [Suspect]
     Indication: DIABETES MELLITUS
     Dosage: 5 MG. 1 DAILY MOUTH
     Route: 048
     Dates: start: 20100701, end: 20100715

REACTIONS (3)
  - BLISTER [None]
  - RASH GENERALISED [None]
  - PRURITUS [None]
